FAERS Safety Report 16074350 (Version 1)
Quarter: 2019Q1

REPORT INFORMATION
  Report Type: Spontaneous
  Country: US (occurrence: US)
  Receive Date: 20190314
  Receipt Date: 20190314
  Transmission Date: 20190418
  Serious: Yes (Other)
  Sender: FDA-Public Use
  Company Number: US-TEVA-2019-US-1021976

PATIENT
  Age: 82 Year
  Sex: Female

DRUGS (1)
  1. ESTRADIOL. [Suspect]
     Active Substance: ESTRADIOL
     Indication: HYSTERECTOMY
     Dosage: 0.5 MG TABLET IN HALF AND TAKING IT EVERY OTHER DAY
     Dates: start: 20190222

REACTIONS (3)
  - Angina pectoris [Unknown]
  - Wrong technique in product usage process [Unknown]
  - Drug ineffective [Unknown]
